FAERS Safety Report 16796258 (Version 2)
Quarter: 2020Q1

REPORT INFORMATION
  Report Type: Report from Study
  Country: US (occurrence: US)
  Receive Date: 20190911
  Receipt Date: 20200131
  Transmission Date: 20200409
  Serious: Yes (Death, Hospitalization)
  Sender: FDA-Public Use
  Company Number: US-ACTELION-A-NJ2017-148732

PATIENT
  Age: 82 Year
  Sex: Female
  Weight: 82.09 kg

DRUGS (1)
  1. OPSUMIT [Suspect]
     Active Substance: MACITENTAN
     Indication: PULMONARY ARTERIAL HYPERTENSION
     Dosage: 10 MG, QD
     Route: 048
     Dates: start: 20131217

REACTIONS (10)
  - Rehabilitation therapy [Unknown]
  - Pain in extremity [Unknown]
  - Hospitalisation [Unknown]
  - Death [Fatal]
  - Arthritis [Unknown]
  - Muscle spasms [Unknown]
  - Product dose omission [Unknown]
  - Fall [Unknown]
  - Limb injury [Unknown]
  - Pain [Unknown]

NARRATIVE: CASE EVENT DATE: 20161215
